FAERS Safety Report 8896557 (Version 1)
Quarter: 2012Q4

REPORT INFORMATION
  Report Type: Spontaneous
  Country: US (occurrence: None)
  Receive Date: 20121107
  Receipt Date: 20121107
  Transmission Date: 20130627
  Serious: Yes (Hospitalization)
  Sender: FDA-Public Use
  Company Number: None

PATIENT
  Sex: Male
  Weight: 76.6 kg

DRUGS (2)
  1. PEG-L-ASPARAGINASE [Suspect]
  2. VINCRISTINE SULFATE [Suspect]

REACTIONS (3)
  - Infusion related reaction [None]
  - Loss of consciousness [None]
  - Anaphylactic reaction [None]
